FAERS Safety Report 12909563 (Version 1)
Quarter: 2016Q4

REPORT INFORMATION
  Report Type: Spontaneous
  Country: US (occurrence: US)
  Receive Date: 20161104
  Receipt Date: 20161104
  Transmission Date: 20170207
  Serious: Yes (Hospitalization)
  Sender: FDA-Public Use
  Company Number: US-SUN PHARMACEUTICAL INDUSTRIES LTD-2016US-126858

PATIENT
  Sex: Female

DRUGS (1)
  1. DOXYCYCLINE. [Suspect]
     Active Substance: DOXYCYCLINE
     Indication: PRODUCT USED FOR UNKNOWN INDICATION
     Dosage: UNK
     Route: 065
     Dates: start: 2016, end: 2016

REACTIONS (6)
  - Hypoaesthesia [Unknown]
  - Peripheral swelling [Unknown]
  - Pain [Unknown]
  - Scar [Unknown]
  - Blister [Unknown]
  - Wound [Unknown]

NARRATIVE: CASE EVENT DATE: 2016
